FAERS Safety Report 23513302 (Version 1)
Quarter: 2024Q1

REPORT INFORMATION
  Report Type: Spontaneous
  Country: US (occurrence: US)
  Receive Date: 20240212
  Receipt Date: 20240212
  Transmission Date: 20240410
  Serious: Yes (Hospitalization)
  Sender: FDA-Public Use
  Company Number: US-TEVA-VS-3154041

PATIENT
  Age: 27 Year
  Sex: Female

DRUGS (3)
  1. WARFARIN [Suspect]
     Active Substance: WARFARIN
     Indication: Prophylaxis
     Dosage: NIGHTLY
     Route: 065
  2. WARFARIN [Suspect]
     Active Substance: WARFARIN
     Indication: Prophylaxis
     Dosage: DOSE ADJUSTED
     Route: 065
  3. HEPARIN [Suspect]
     Active Substance: HEPARIN SODIUM
     Indication: Prophylaxis
     Dosage: WEIGHT-BASED IV HEPARIN WAS ADMINISTERED
     Route: 042

REACTIONS (2)
  - Haemorrhage [Unknown]
  - Maternal exposure during pregnancy [Unknown]
